FAERS Safety Report 12504880 (Version 1)
Quarter: 2016Q2

REPORT INFORMATION
  Report Type: Spontaneous
  Country: US (occurrence: US)
  Receive Date: 20160628
  Receipt Date: 20160628
  Transmission Date: 20160815
  Serious: Yes (Hospitalization, Other)
  Sender: FDA-Public Use
  Company Number: US-SMITH AND NEPHEW, INC-2016SMT00538

PATIENT
  Sex: Male
  Weight: 108.84 kg

DRUGS (5)
  1. REGRANEX [Suspect]
     Active Substance: BECAPLERMIN
     Indication: WOUND
     Dosage: UNK
     Route: 061
     Dates: start: 2016, end: 2016
  2. EOSINOPRIL [Concomitant]
     Dosage: 40 MG, 1X/DAY
  3. LANCET [Concomitant]
     Indication: DIABETES MELLITUS
  4. HUMALOG [Concomitant]
     Active Substance: INSULIN LISPRO
     Indication: DIABETES MELLITUS
  5. HUMULIN NOS [Concomitant]
     Active Substance: INSULIN HUMAN
     Indication: DIABETES MELLITUS

REACTIONS (5)
  - Foot amputation [Recovered/Resolved with Sequelae]
  - Drug ineffective [Unknown]
  - Localised infection [Recovered/Resolved with Sequelae]
  - Toe amputation [Recovered/Resolved with Sequelae]
  - Application site infection [Recovered/Resolved with Sequelae]

NARRATIVE: CASE EVENT DATE: 2016
